FAERS Safety Report 6279003-0 (Version None)
Quarter: 2009Q3

REPORT INFORMATION
  Report Type: 
  Country: None (occurrence: None)
  Receive Date: 20090723
  Receipt Date: 20090715
  Transmission Date: 20100115
  Serious: No
  Sender: FDA-Public Use
  Company Number: PHEH2009US07561

PATIENT
  Sex: Female

DRUGS (8)
  1. TASIGNA [Suspect]
     Indication: CHRONIC MYELOID LEUKAEMIA
     Dosage: 400 MG, Q12H
     Route: 048
     Dates: start: 20090601
  2. CALCIUM [Concomitant]
  3. ESTRADIOL [Concomitant]
  4. ACIPHEX [Concomitant]
  5. DETROL [Concomitant]
  6. ZOLPIDEM [Concomitant]
  7. EFFEXOR [Concomitant]
  8. PREVACID [Concomitant]

REACTIONS (1)
  - HEADACHE [None]
